FAERS Safety Report 25292627 (Version 2)
Quarter: 2025Q2

REPORT INFORMATION
  Report Type: Spontaneous
  Country: US (occurrence: US)
  Receive Date: 20250510
  Receipt Date: 20250515
  Transmission Date: 20250716
  Serious: No
  Sender: SANOFI AVENTIS
  Company Number: US-SA-2025SA123738

PATIENT
  Age: 2 Year
  Sex: Male

DRUGS (1)
  1. DUPIXENT [Suspect]
     Active Substance: DUPILUMAB
     Indication: Eosinophilic oesophagitis
     Dosage: 200 MG, QOW
     Route: 058
     Dates: start: 202503

REACTIONS (7)
  - Seasonal allergy [Unknown]
  - Pyrexia [Unknown]
  - Retching [Unknown]
  - Vomiting [Unknown]
  - Diarrhoea [Unknown]
  - Eye pruritus [Unknown]
  - Eye swelling [Unknown]

NARRATIVE: CASE EVENT DATE: 20250101
